FAERS Safety Report 7269265-5 (Version None)
Quarter: 2011Q1

REPORT INFORMATION
  Report Type: 
  Country: None (occurrence: None)
  Receive Date: 20110202
  Receipt Date: 20110118
  Transmission Date: 20110831
  Serious: Yes (Hospitalization, Other)
  Sender: FDA-Public Use
  Company Number: US-RANBAXY-2011US-41379

PATIENT
  Age: 21 Year
  Sex: Male

DRUGS (4)
  1. OLANZAPINE [Suspect]
     Dosage: 15 MG EVERY NIGHT
     Route: 065
  2. RISPERIDONE [Suspect]
     Indication: PRODUCT USED FOR UNKNOWN INDICATION
     Route: 065
  3. OLANZAPINE [Suspect]
     Indication: PRODUCT USED FOR UNKNOWN INDICATION
     Dosage: 5 MG MORNING, 10 MG NIGHT
     Route: 048
     Dates: start: 20070701
  4. QUETIAPINE [Suspect]
     Indication: PSYCHOTIC DISORDER
     Dosage: 25 MG EVERY NIGHT
     Route: 065

REACTIONS (3)
  - PRIAPISM [None]
  - ACUTE PSYCHOSIS [None]
  - TREATMENT NONCOMPLIANCE [None]
